FAERS Safety Report 19000119 (Version 1)
Quarter: 2021Q1

REPORT INFORMATION
  Report Type: Spontaneous
  Country: CN (occurrence: CN)
  Receive Date: 20210312
  Receipt Date: 20210312
  Transmission Date: 20210420
  Serious: Yes (Other)
  Sender: FDA-Public Use
  Company Number: CN-BAXTER-2021BAX004769

PATIENT
  Age: 71 Year
  Sex: Female
  Weight: 60 kg

DRUGS (13)
  1. ENDOXAN [Suspect]
     Active Substance: CYCLOPHOSPHAMIDE
     Dosage: THIRD CHEMOTHERAPY, ENDOXAN 720 MG + NS 40ML
     Route: 042
     Dates: start: 20210111, end: 20210111
  2. 0.9% SODIUM CHLORIDE INJECTION [Suspect]
     Active Substance: SODIUM CHLORIDE
     Dosage: THIRD CHEMOTHERAPY, TAXOTERE 90 MG + NS 250ML
     Route: 041
     Dates: start: 20210111, end: 20210111
  3. 0.9% SODIUM CHLORIDE INJECTION [Suspect]
     Active Substance: SODIUM CHLORIDE
     Dosage: THIRD CHEMOTHERAPY, ENDOXAN 720 MG + NS 40ML
     Route: 042
     Dates: start: 20210111, end: 20210111
  4. 0.9% SODIUM CHLORIDE INJECTION [Suspect]
     Active Substance: SODIUM CHLORIDE
     Dosage: DOSE RE?INTRODUCED, ENDOXAN + NS
     Route: 042
  5. TAXOTERE [Suspect]
     Active Substance: DOCETAXEL
     Dosage: DOSE RE?INTRODUCED, TAXOTERE + NS
     Route: 041
  6. 0.9% SODIUM CHLORIDE INJECTION [Suspect]
     Active Substance: SODIUM CHLORIDE
     Dosage: DOSE RE?INTRODUCED, TAXOTERE + NS
     Route: 041
  7. ENDOXAN [Suspect]
     Active Substance: CYCLOPHOSPHAMIDE
     Dosage: DOSE RE?INTRODUCED, ENDOXAN + NS
     Route: 042
  8. 0.9% SODIUM CHLORIDE INJECTION [Suspect]
     Active Substance: SODIUM CHLORIDE
     Indication: MEDICATION DILUTION
     Dosage: FIRST 2 CHEMOTHERAPIES, TAXOTERE + NS
     Route: 041
  9. TAXOTERE [Suspect]
     Active Substance: DOCETAXEL
     Indication: BREAST CANCER FEMALE
     Dosage: FIRST 2 CHEMOTHERAPIES, TAXOTERE + NS
     Route: 041
  10. TAXOTERE [Suspect]
     Active Substance: DOCETAXEL
     Dosage: THIRD CHEMOTHERAPY, TAXOTERE 90 MG + NS 250ML
     Route: 041
     Dates: start: 20210111, end: 20210111
  11. ENDOXAN [Suspect]
     Active Substance: CYCLOPHOSPHAMIDE
     Indication: BREAST CANCER FEMALE
     Dosage: FIRST 2 CHEMOTHERAPIES, ENDOXAN + NS
     Route: 042
  12. JINYOULI [Concomitant]
     Active Substance: ANF-RHO
     Indication: PROPHYLAXIS
     Route: 058
     Dates: start: 20210112
  13. 0.9% SODIUM CHLORIDE INJECTION [Suspect]
     Active Substance: SODIUM CHLORIDE
     Dosage: FIRST 2 CHEMOTHERAPIES, ENDOXAN + NS
     Route: 042

REACTIONS (2)
  - Agranulocytosis [Recovered/Resolved]
  - White blood cell count decreased [Recovered/Resolved]

NARRATIVE: CASE EVENT DATE: 20210117
